FAERS Safety Report 7655904-3 (Version None)
Quarter: 2011Q3

REPORT INFORMATION
  Report Type: 
  Country: None (occurrence: None)
  Receive Date: 20110804
  Receipt Date: 20110804
  Transmission Date: 20111222
  Serious: Yes (Life-Threatening, Hospitalization)
  Sender: FDA-Public Use
  Company Number: None

PATIENT
  Sex: Male
  Weight: 85 kg

DRUGS (2)
  1. BENZ-O-STHETIC SPRAY [Suspect]
     Indication: ANAESTHESIA
     Dosage: } 1 SPRAY
     Route: 061
     Dates: start: 20110413, end: 20110413
  2. BENZ-O-STHETIC SPRAY [Suspect]
     Indication: ECHOCARDIOGRAM
     Dosage: } 1 SPRAY
     Route: 061
     Dates: start: 20110413, end: 20110413

REACTIONS (5)
  - CYANOSIS [None]
  - SKIN DISCOLOURATION [None]
  - BLOOD METHAEMOGLOBIN PRESENT [None]
  - OXYGEN SATURATION DECREASED [None]
  - DRUG INEFFECTIVE [None]
